FAERS Safety Report 5391215-7 (Version None)
Quarter: 2007Q3

REPORT INFORMATION
  Report Type: 
  Country: None (occurrence: None)
  Receive Date: 20070719
  Receipt Date: 20070706
  Transmission Date: 20080115
  Serious: Yes (Life-Threatening, Hospitalization)
  Sender: FDA-Public Use
  Company Number: GB-AMGEN-US234283

PATIENT
  Age: 57 Year
  Sex: Female

DRUGS (4)
  1. ENBREL [Suspect]
     Indication: RHEUMATOID ARTHRITIS
     Route: 058
     Dates: start: 20061024, end: 20070325
  2. DIHYDROCODEINE BITARTRATE INJ [Concomitant]
     Dosage: UNKNOWN
     Route: 065
  3. PREDNISOLONE [Concomitant]
     Dosage: UNKNOWN
     Route: 065
  4. ACUPAN [Concomitant]
     Dosage: UNKNOWN
     Route: 065

REACTIONS (1)
  - INTESTINAL INFARCTION [None]
